FAERS Safety Report 7455120-4 (Version None)
Quarter: 2011Q2

REPORT INFORMATION
  Report Type: 
  Country: None (occurrence: None)
  Receive Date: 20110503
  Receipt Date: 20110429
  Transmission Date: 20111010
  Serious: Yes (Hospitalization)
  Sender: FDA-Public Use
  Company Number: CA-ABBOTT-10P-028-0684480-00

PATIENT
  Sex: Female
  Weight: 59.928 kg

DRUGS (15)
  1. PMS-SULFASALAZINE E.C. [Concomitant]
     Indication: RHEUMATOID ARTHRITIS
     Route: 048
     Dates: start: 20100101
  2. MYLAN-HYDROXYCHLOROQUINE 2 [Concomitant]
     Indication: PRODUCT USED FOR UNKNOWN INDICATION
     Dosage: UNKNOWN
     Route: 048
  3. NOVO-ALENDRONATE [Concomitant]
     Indication: BONE DISORDER
     Route: 048
     Dates: start: 20100101
  4. MAGNESIUM OXIDE [Concomitant]
     Indication: INFECTION
     Route: 048
     Dates: start: 20101105
  5. CALCIUM CARBONATE [Concomitant]
     Indication: RHEUMATOID ARTHRITIS
     Route: 048
     Dates: start: 20101105
  6. PMS-LORAZEPAM [Concomitant]
     Indication: PRODUCT USED FOR UNKNOWN INDICATION
     Route: 048
     Dates: start: 20101105
  7. MYLAN-SERTRALINE [Concomitant]
     Indication: PRODUCT USED FOR UNKNOWN INDICATION
     Route: 048
     Dates: start: 20101105
  8. VITAMIN C [Concomitant]
     Indication: IMMUNE SYSTEM DISORDER
     Dosage: DAILY DOSE: 1000 (UNITS UNKNOWN)
     Route: 048
     Dates: start: 20101105
  9. HUMIRA [Suspect]
     Indication: RHEUMATOID ARTHRITIS
     Route: 058
     Dates: start: 20101027, end: 20101027
  10. ATACAND [Concomitant]
     Indication: HYPERTENSION
     Route: 048
     Dates: start: 19990101
  11. ACETYLSALICYLIC ACID SRT [Concomitant]
     Indication: CARDIOVASCULAR EVENT PROPHYLAXIS
     Route: 048
     Dates: start: 20060101
  12. TEVA-RABEPRAZOLE [Concomitant]
     Indication: PRODUCT USED FOR UNKNOWN INDICATION
     Route: 048
  13. PMS-HYDROCHLOROTHIAZIDE [Concomitant]
     Indication: PRODUCT USED FOR UNKNOWN INDICATION
     Route: 048
  14. TYLENOL ARTHRITIS PAIN EXTENDED RELIEF [Concomitant]
     Indication: RHEUMATOID ARTHRITIS
     Route: 048
     Dates: start: 20101105
  15. WELL-QUEST VITAMIN D [Concomitant]
     Indication: VITAMIN SUPPLEMENTATION
     Route: 048
     Dates: start: 20101105

REACTIONS (17)
  - CHILLS [None]
  - ESCHERICHIA BACTERAEMIA [None]
  - IMMUNODEFICIENCY [None]
  - POLLAKIURIA [None]
  - CONFUSIONAL STATE [None]
  - DEPRESSION [None]
  - ANXIETY [None]
  - CATARACT [None]
  - MINERAL DEFICIENCY [None]
  - VOMITING [None]
  - PYREXIA [None]
  - WEIGHT DECREASED [None]
  - AMNESIA [None]
  - DELIRIUM [None]
  - ABDOMINAL DISTENSION [None]
  - CHROMATURIA [None]
  - HYPOVITAMINOSIS [None]
